FAERS Safety Report 23772646 (Version 1)
Quarter: 2024Q2

REPORT INFORMATION
  Report Type: Spontaneous
  Country: US (occurrence: None)
  Receive Date: 20240422
  Receipt Date: 20240422
  Transmission Date: 20240716
  Serious: Yes (Other)
  Sender: FDA-Public Use
  Company Number: None

PATIENT
  Age: 59 Year
  Sex: Male
  Weight: 85.9 kg

DRUGS (5)
  1. AMBISOME [Suspect]
     Active Substance: AMPHOTERICIN B
     Indication: Fungal infection
     Dosage: FREQUENCY : DAILY;?
     Route: 042
     Dates: start: 20240401, end: 20240403
  2. NOREPINEPHRINE [Suspect]
     Active Substance: NOREPINEPHRINE\NOREPINEPHRINE BITARTRATE
     Indication: Hypotension
     Dosage: OTHER FREQUENCY : CONTINUOUS;?
     Route: 041
     Dates: start: 20240401, end: 20240405
  3. Meropenem 2000 mg IVPB [Concomitant]
     Dates: start: 20240401, end: 20240405
  4. Micafungin 100 mg IV [Concomitant]
     Dates: start: 20240401, end: 20240403
  5. Propofol 50 mcg/kg/min [Concomitant]
     Dates: start: 20240401, end: 20240405

REACTIONS (7)
  - Septic shock [None]
  - Acute respiratory failure [None]
  - Pneumonia [None]
  - Pleural effusion [None]
  - Tachycardia [None]
  - Wrong technique in product usage process [None]
  - Wrong product administered [None]

NARRATIVE: CASE EVENT DATE: 20240401
